FAERS Safety Report 9942661 (Version 1)
Quarter: 2014Q1

REPORT INFORMATION
  Report Type: Report from Study
  Country: US (occurrence: US)
  Receive Date: 20140303
  Receipt Date: 20140303
  Transmission Date: 20141002
  Serious: No
  Sender: FDA-Public Use
  Company Number: US-ABBVIE-13P-163-1045008-00

PATIENT
  Age: 48 Year
  Sex: Male

DRUGS (9)
  1. HUMIRA [Suspect]
     Indication: CROHN^S DISEASE
  2. NEXIUM [Concomitant]
     Indication: GASTROOESOPHAGEAL REFLUX DISEASE
  3. QUESTRAN POWDER [Concomitant]
     Indication: CROHN^S DISEASE
  4. BUSPAR [Concomitant]
     Indication: ANXIETY
     Dosage: 1/2 TAB IN THE MORNING AND 1 TAB AT NIGHT
  5. GABAPENTIN [Concomitant]
     Indication: NEURALGIA
  6. PENTASA [Concomitant]
     Indication: CROHN^S DISEASE
  7. TRICOR [Concomitant]
     Indication: BLOOD TRIGLYCERIDES INCREASED
  8. VITAMIN D [Concomitant]
     Indication: VITAMIN SUPPLEMENTATION
  9. FOLIC ACID [Concomitant]
     Indication: VITAMIN SUPPLEMENTATION

REACTIONS (1)
  - Viral infection [Not Recovered/Not Resolved]
